FAERS Safety Report 10339574 (Version 2)
Quarter: 2014Q3

REPORT INFORMATION
  Report Type: Spontaneous
  Country: SG (occurrence: SG)
  Receive Date: 20140724
  Receipt Date: 20140724
  Transmission Date: 20150326
  Serious: Yes (Hospitalization)
  Sender: FDA-Public Use
  Company Number: GXKR2010SG05067

PATIENT
  Age: 38 Year
  Sex: Female

DRUGS (7)
  1. VALPROIC ACID. [Interacting]
     Active Substance: VALPROIC ACID
     Indication: AGGRESSION
     Dosage: 1 G, QD
  2. FLUOXETINE [Interacting]
     Active Substance: FLUOXETINE\FLUOXETINE HYDROCHLORIDE
     Dosage: 40 MG, QD
  3. FLUPHENAZINE [Suspect]
     Active Substance: FLUPHENAZINE
     Dosage: 25 MG, QMO
     Route: 030
  4. QUETIAPINE [Suspect]
     Active Substance: QUETIAPINE
     Dosage: 1500 MG, QD
  5. QUETIAPINE [Suspect]
     Active Substance: QUETIAPINE
     Dosage: 600 MG, QD
  6. VALPROIC ACID. [Suspect]
     Active Substance: VALPROIC ACID
     Indication: IRRITABILITY
     Dosage: 1.5 G, QD
  7. VALPROIC ACID. [Interacting]
     Active Substance: VALPROIC ACID
     Indication: AGITATION

REACTIONS (5)
  - Hyperammonaemic encephalopathy [Recovered/Resolved]
  - Drug interaction [Recovered/Resolved]
  - Asthenia [Recovered/Resolved]
  - Aggression [Recovered/Resolved]
  - Gait disturbance [Recovered/Resolved]
